FAERS Safety Report 14019503 (Version 1)
Quarter: 2017Q3

REPORT INFORMATION
  Report Type: Spontaneous
  Country: IN (occurrence: IN)
  Receive Date: 20170928
  Receipt Date: 20170928
  Transmission Date: 20171128
  Serious: Yes (Other)
  Sender: FDA-Public Use
  Company Number: IN-GLENMARK PHARMACEUTICALS-2017GMK029000

PATIENT
  Age: 26 Year
  Sex: Female

DRUGS (2)
  1. ONDANSETRON [Suspect]
     Active Substance: ONDANSETRON
     Indication: VOMITING
  2. ONDANSETRON [Suspect]
     Active Substance: ONDANSETRON
     Indication: NAUSEA
     Dosage: 4 MG, OD
     Route: 048

REACTIONS (3)
  - Erythema [Recovered/Resolved with Sequelae]
  - Fixed eruption [Recovered/Resolved with Sequelae]
  - Macule [Recovered/Resolved with Sequelae]
